FAERS Safety Report 4974377-2 (Version None)
Quarter: 2006Q2

REPORT INFORMATION
  Report Type: 
  Country: None (occurrence: None)
  Receive Date: 20060410
  Receipt Date: 20060328
  Transmission Date: 20061013
  Serious: Yes (Other)
  Sender: FDA-Public Use
  Company Number: 2006043147

PATIENT
  Age: 75 Year
  Sex: Female
  Weight: 81.6475 kg

DRUGS (17)
  1. LIPITOR [Suspect]
     Indication: MYOCARDIAL INFARCTION
     Dosage: 20 MG (20 MG, 1 IN 1 D)
  2. NITROSTAT [Suspect]
     Indication: CHEST PAIN
     Dosage: (0.4 MG, PRN), SUBLINGUAL
     Route: 060
  3. LYRICA [Suspect]
     Indication: DIABETIC NEUROPATHY
     Route: 060
  4. SPIRIVA [Suspect]
     Indication: DYSPNOEA
     Dosage: (DAILY INTERVAL:  EVERY DAY)
  5. INSULIN [Concomitant]
  6. METFORMIN [Concomitant]
  7. PROZAC [Concomitant]
  8. ATENOLOL [Concomitant]
  9. HYDROCHLOROTHIAZIDE [Concomitant]
  10. ISOSORBIDE [Concomitant]
  11. VALSARTAN [Concomitant]
  12. ALBUTEROL [Concomitant]
  13. WARFARIN SODIUM [Concomitant]
  14. CALCIUM GLUCONATE [Concomitant]
  15. VITAMIN D [Concomitant]
  16. ASPIRIN [Concomitant]
  17. .. [Concomitant]

REACTIONS (3)
  - DIABETIC NEUROPATHY [None]
  - HIGH DENSITY LIPOPROTEIN DECREASED [None]
  - RESPIRATORY DISORDER [None]
